FAERS Safety Report 9506051 (Version 1)
Quarter: 2013Q1

REPORT INFORMATION
  Report Type: Spontaneous
  Country: US (occurrence: None)
  Receive Date: 20130305
  Receipt Date: 20130305
  Transmission Date: 20140127
  Serious: Yes (Hospitalization)
  Sender: FDA-Public Use
  Company Number: 163-21880-12052461

PATIENT
  Age: 42 Year
  Sex: Male
  Weight: 77.11 kg

DRUGS (6)
  1. REVLIMID (LENALIDOMIDE) (15 MILLIGRAM, CAPSULES) [Suspect]
     Indication: PLASMA CELL MYELOMA
     Dosage: 15 MG, CAPSULE, Q 21 DAYS, PO
     Dates: start: 20060101
  2. ADDERALL (OBETROL) [Concomitant]
  3. AMBIEN (ZOLPIDEM TARTRATE) [Concomitant]
  4. LORAZEPAM [Concomitant]
  5. MORPHINE [Concomitant]
  6. MULTIVITAMIN [Concomitant]

REACTIONS (2)
  - Catheter site infection [None]
  - Musculoskeletal pain [None]
